FAERS Safety Report 8878658 (Version 1)
Quarter: 2012Q4

REPORT INFORMATION
  Report Type: 
  Country: US (occurrence: US)
  Receive Date: 20121026
  Receipt Date: 20121026
  Transmission Date: 20130627
  Serious: No
  Sender: FDA-Public Use
  Company Number: PHEH2012US020850

PATIENT
  Sex: Female

DRUGS (7)
  1. TASIGNA [Suspect]
     Dosage: 300 mg, BID
     Route: 048
     Dates: start: 20121017
  2. SYNTHROID [Concomitant]
  3. MONOPRIL [Concomitant]
  4. HCT [Concomitant]
  5. ACTOS [Concomitant]
  6. CLORAZEPATE [Concomitant]
  7. PRAVASTATIN [Concomitant]
     Dosage: 20 mg, UNK

REACTIONS (2)
  - Blood count abnormal [Unknown]
  - Rash [Unknown]
